FAERS Safety Report 13047900 (Version 3)
Quarter: 2017Q2

REPORT INFORMATION
  Report Type: Spontaneous
  Country: JP (occurrence: JP)
  Receive Date: 20161220
  Receipt Date: 20170501
  Transmission Date: 20170830
  Serious: Yes (Death)
  Sender: FDA-Public Use
  Company Number: JP-SA-2016SA231623

PATIENT
  Sex: Male
  Weight: 63 kg

DRUGS (8)
  1. JEVTANA [Suspect]
     Active Substance: CABAZITAXEL
     Indication: PROSTATE CANCER
     Dosage: DOSE: 34MG/BODY
     Route: 042
  2. TAKECAB [Concomitant]
     Active Substance: VONOPRAZAN FUMURATE
     Route: 048
  3. PREDNISOLONE. [Concomitant]
     Active Substance: PREDNISOLONE
     Route: 048
  4. LUNESTA [Concomitant]
     Active Substance: ESZOPICLONE
     Route: 048
  5. JEVTANA [Suspect]
     Active Substance: CABAZITAXEL
     Indication: PROSTATE CANCER
     Route: 042
     Dates: start: 20160524, end: 20160524
  6. JEVTANA [Suspect]
     Active Substance: CABAZITAXEL
     Indication: PROSTATE CANCER
     Dosage: DOSE: 30MG/BODY
     Route: 042
     Dates: start: 20161206, end: 20161206
  7. JEVTANA [Suspect]
     Active Substance: CABAZITAXEL
     Indication: PROSTATE CANCER
     Route: 042
  8. G-LASTA [Concomitant]
     Active Substance: PEGFILGRASTIM
     Route: 065

REACTIONS (11)
  - Metabolic acidosis [Unknown]
  - C-reactive protein increased [Unknown]
  - Disseminated intravascular coagulation [Unknown]
  - Renal impairment [Unknown]
  - Multiple organ dysfunction syndrome [Fatal]
  - Oliguria [Unknown]
  - Pyrexia [Unknown]
  - Febrile neutropenia [Fatal]
  - Septic shock [Fatal]
  - Blood creatine increased [Unknown]
  - Anaemia [Unknown]

NARRATIVE: CASE EVENT DATE: 201610
